FAERS Safety Report 7107992-0 (Version None)
Quarter: 2010Q4

REPORT INFORMATION
  Report Type: 
  Country: None (occurrence: None)
  Receive Date: 20101117
  Receipt Date: 20101104
  Transmission Date: 20110411
  Serious: Yes (Hospitalization, Other)
  Sender: FDA-Public Use
  Company Number: FR-PFIZER INC-FR-WYE-G01573108

PATIENT
  Age: 38 Year
  Sex: Female

DRUGS (6)
  1. EFFEXOR XR [Suspect]
     Indication: DEPRESSION
     Dosage: UNK
     Dates: start: 19990101
  2. TEMESTA [Suspect]
     Dosage: UNK
     Route: 048
     Dates: end: 20090301
  3. TERCIAN [Suspect]
     Dosage: 75 MG, 1X/DAY
     Route: 048
     Dates: end: 20081220
  4. ZYPREXA [Concomitant]
     Dosage: 10 MG, 1X/DAY
     Dates: start: 20100601
  5. RISPERDAL [Concomitant]
     Route: 030
  6. LYSANXIA [Concomitant]
     Indication: ANXIETY

REACTIONS (30)
  - ALOPECIA [None]
  - AMNESIA [None]
  - ANXIETY [None]
  - ASTHENIA [None]
  - CONDITION AGGRAVATED [None]
  - CRYING [None]
  - DECREASED APPETITE [None]
  - DRUG INEFFECTIVE [None]
  - DRUG WITHDRAWAL SYNDROME [None]
  - DYSKINESIA [None]
  - DYSPNOEA [None]
  - DYSSTASIA [None]
  - FATIGUE [None]
  - GLOSSODYNIA [None]
  - HAIR TEXTURE ABNORMAL [None]
  - HYPERSOMNIA [None]
  - INSOMNIA [None]
  - INTENTIONAL OVERDOSE [None]
  - MALAISE [None]
  - MUSCULAR WEAKNESS [None]
  - MUSCULOSKELETAL CHEST PAIN [None]
  - OROPHARYNGEAL PLAQUE [None]
  - PARAESTHESIA [None]
  - PRESYNCOPE [None]
  - SOMNOLENCE [None]
  - SPEECH DISORDER [None]
  - SUICIDAL IDEATION [None]
  - SUICIDE ATTEMPT [None]
  - TONGUE DISORDER [None]
  - VERTIGO [None]
